FAERS Safety Report 22526165 (Version 1)
Quarter: 2023Q2

REPORT INFORMATION
  Report Type: Spontaneous
  Country: US (occurrence: None)
  Receive Date: 20230605
  Receipt Date: 20230605
  Transmission Date: 20230722
  Serious: Yes (Other)
  Sender: FDA-Public Use
  Company Number: None

PATIENT
  Sex: Female

DRUGS (7)
  1. DIMETHYL FUMARATE [Suspect]
     Active Substance: DIMETHYL FUMARATE
     Indication: Multiple sclerosis
     Dosage: 240 MG ORAL??TAKE 1 CAPSULE BY MOUTH TWICE DAILY
     Route: 048
     Dates: start: 20210130
  2. DIMETHYL FUMARATE [Suspect]
     Active Substance: DIMETHYL FUMARATE
     Dosage: FREQUENCY : TWICE A DAY;?
     Route: 048
  3. GABAPENTIN [Concomitant]
     Active Substance: GABAPENTIN
  4. HYDROCHLOROTHIAZIDE [Concomitant]
     Active Substance: HYDROCHLOROTHIAZIDE
  5. POTASSIUM GL [Concomitant]
  6. TRAMADOL HCL [Concomitant]
  7. VITAMIN D [Concomitant]

REACTIONS (2)
  - Fall [None]
  - Wrist fracture [None]
